FAERS Safety Report 5885216-X (Version None)
Quarter: 2008Q3

REPORT INFORMATION
  Report Type: 
  Country: None (occurrence: None)
  Receive Date: 20080912
  Receipt Date: 20080828
  Transmission Date: 20090109
  Serious: Yes (Other)
  Sender: FDA-Public Use
  Company Number: CIP08001691

PATIENT
  Age: 60 Year
  Sex: Female

DRUGS (3)
  1. ACTONEL [Suspect]
     Indication: OSTEOPENIA
     Dosage: 35 MG ONCE WEEKLY, ORAL
     Route: 048
     Dates: start: 20030101
  2. HORMONES NOS [Concomitant]
  3. VITAMINS NOS [Concomitant]

REACTIONS (5)
  - ACCIDENT [None]
  - FEMUR FRACTURE [None]
  - HYPERPARATHYROIDISM [None]
  - PARATHYROID TUMOUR BENIGN [None]
  - SPORTS INJURY [None]
